FAERS Safety Report 5346377-4 (Version None)
Quarter: 2007Q2

REPORT INFORMATION
  Report Type: 
  Country: None (occurrence: None)
  Receive Date: 20070605
  Receipt Date: 20070528
  Transmission Date: 20071010
  Serious: Yes (Hospitalization)
  Sender: FDA-Public Use
  Company Number: FR-PFIZER INC-2007042167

PATIENT
  Age: 99 Year
  Sex: Male

DRUGS (7)
  1. ZOLOFT [Suspect]
     Route: 048
     Dates: start: 20050101, end: 20070312
  2. CIPRALAN [Concomitant]
  3. CREON [Concomitant]
  4. DAFLON [Concomitant]
  5. DI-ANTALVIC [Concomitant]
  6. TRIATEC [Concomitant]
  7. PERIDYS [Concomitant]

REACTIONS (1)
  - RECTAL HAEMORRHAGE [None]
